FAERS Safety Report 22061592 (Version 1)
Quarter: 2023Q1

REPORT INFORMATION
  Report Type: Report from Study
  Country: ZA (occurrence: ZA)
  Receive Date: 20230304
  Receipt Date: 20230304
  Transmission Date: 20230417
  Serious: Yes (Hospitalization)
  Sender: FDA-Public Use
  Company Number: ZA-ABBVIE-4132710

PATIENT
  Age: 71 Year

DRUGS (1)
  1. HUMIRA [Suspect]
     Active Substance: ADALIMUMAB
     Indication: Rheumatoid arthritis
     Route: 058
     Dates: start: 20220720, end: 202208

REACTIONS (6)
  - Adverse drug reaction [Recovered/Resolved]
  - Immunodeficiency [Recovering/Resolving]
  - Dialysis [Recovered/Resolved]
  - Hypoaesthesia [Recovering/Resolving]
  - Infection [Recovering/Resolving]
  - Fall [Recovered/Resolved]

NARRATIVE: CASE EVENT DATE: 20220101
